FAERS Safety Report 4359560-1 (Version None)
Quarter: 2004Q2

REPORT INFORMATION
  Report Type: 
  Country: None (occurrence: None)
  Receive Date: 20040517
  Receipt Date: 20040517
  Transmission Date: 20050107
  Serious: Yes (Other)
  Sender: FDA-Public Use
  Company Number: None

PATIENT
  Sex: Female
  Weight: 53.0709 kg

DRUGS (5)
  1. PULMICORT [Suspect]
     Indication: ASTHMA
     Dosage: 2 PUFFS TWICE DAIL RESPIRATORY
     Route: 055
     Dates: start: 20030825, end: 20040429
  2. PULMICORT [Suspect]
     Indication: CHRONIC OBSTRUCTIVE AIRWAYS DISEASE
     Dosage: 2 PUFFS TWICE DAIL RESPIRATORY
     Route: 055
     Dates: start: 20030825, end: 20040429
  3. SEREVENT [Concomitant]
  4. FORADIL [Concomitant]
  5. PROVENTIL [Concomitant]

REACTIONS (2)
  - ACTIVITIES OF DAILY LIVING IMPAIRED [None]
  - HEADACHE [None]
